FAERS Safety Report 9836709 (Version 3)
Quarter: 2015Q1

REPORT INFORMATION
  Report Type: Spontaneous
  Country: FR (occurrence: FR)
  Receive Date: 20140123
  Receipt Date: 20150203
  Transmission Date: 20150721
  Serious: Yes (Hospitalization, Disabling)
  Sender: FDA-Public Use
  Company Number: PHHY2014FR005900

PATIENT
  Age: 71 Year
  Sex: Male

DRUGS (3)
  1. NEURONTIN [Suspect]
     Active Substance: GABAPENTIN
     Indication: PRODUCT USED FOR UNKNOWN INDICATION
     Dosage: UNK UKN, UNK
     Route: 048
     Dates: start: 20131111
  2. IBUPROFEN. [Concomitant]
     Active Substance: IBUPROFEN
     Indication: TRIGEMINAL NEURALGIA
     Dosage: UNK UKN, UNK
     Route: 065
     Dates: start: 20131019, end: 20131028
  3. TEGRETOL [Suspect]
     Active Substance: CARBAMAZEPINE
     Indication: PRODUCT USED FOR UNKNOWN INDICATION
     Dosage: 1 DF, BID
     Route: 048
     Dates: start: 20131028

REACTIONS (7)
  - Eosinophilic myocarditis [Recovered/Resolved with Sequelae]
  - Drug reaction with eosinophilia and systemic symptoms [Recovering/Resolving]
  - Lung disorder [Recovered/Resolved]
  - Leg amputation [Not Recovered/Not Resolved]
  - Deep vein thrombosis [Recovered/Resolved with Sequelae]
  - Thrombocytopenia [Recovered/Resolved]
  - Pyrexia [Recovered/Resolved]

NARRATIVE: CASE EVENT DATE: 20131123
